FAERS Safety Report 21051850 (Version 1)
Quarter: 2022Q3

REPORT INFORMATION
  Report Type: Spontaneous
  Country: JP (occurrence: JP)
  Receive Date: 20220707
  Receipt Date: 20220707
  Transmission Date: 20221026
  Serious: Yes (Hospitalization)
  Sender: FDA-Public Use
  Company Number: JP-MEIJISEIKA-202203245_P_1

PATIENT
  Age: 67 Year
  Sex: Female

DRUGS (3)
  1. REFLEX [Suspect]
     Active Substance: MIRTAZAPINE
     Indication: Depression
     Dosage: 15 MG/DAY
     Route: 048
  2. VENLAFAXINE HYDROCHLORIDE [Concomitant]
     Active Substance: VENLAFAXINE HYDROCHLORIDE
     Indication: Depression
     Dosage: 150 MILLIGRAM/DAY
     Route: 065
  3. QUETIAPINE FUMARATE [Concomitant]
     Active Substance: QUETIAPINE FUMARATE
     Dosage: 75 MILLIGRAM/DAY
     Route: 048

REACTIONS (4)
  - Clonus [Recovering/Resolving]
  - Muscle rigidity [Recovering/Resolving]
  - Altered state of consciousness [Recovering/Resolving]
  - Delirium [Recovering/Resolving]
